FAERS Safety Report 7565942 (Version 4)
Quarter: 2014Q1

REPORT INFORMATION
  Report Type: Spontaneous
  Country: US (occurrence: US)
  Receive Date: 20100830
  Receipt Date: 20140128
  Transmission Date: 20141002
  Serious: Yes (Hospitalization, Other)
  Sender: FDA-Public Use
  Company Number: US-BAYER-201031613NA

PATIENT
  Age: 19 Year
  Sex: Female
  Weight: 99.77 kg

DRUGS (11)
  1. YASMIN [Suspect]
     Indication: CONTRACEPTION
     Dosage: UNK
     Route: 048
     Dates: start: 2003, end: 2008
  2. YASMIN [Suspect]
     Indication: POLYCYSTIC OVARIES
  3. YASMIN [Suspect]
     Indication: MENSTRUATION IRREGULAR
  4. OCELLA [Suspect]
     Indication: CONTRACEPTION
     Dosage: UNK
     Dates: start: 2003, end: 2008
  5. OCELLA [Suspect]
     Indication: POLYCYSTIC OVARIES
  6. SYNTHROID [Concomitant]
     Dosage: UNK
     Dates: start: 2007
  7. TRICOR [Concomitant]
     Indication: HYPERTRIGLYCERIDAEMIA
  8. ZOCOR [Concomitant]
     Indication: HYPERTRIGLYCERIDAEMIA
  9. NIASPAN [Concomitant]
     Indication: HYPERTRIGLYCERIDAEMIA
  10. CITALOPRAM [Concomitant]
     Dosage: 20 MG, UNK
  11. LEVAQUIN [Concomitant]
     Dosage: 250 MG, UNK

REACTIONS (17)
  - Pancreatitis [Unknown]
  - Pancreatitis [Unknown]
  - Gallbladder disorder [Recovered/Resolved]
  - Impaired gastric emptying [Not Recovered/Not Resolved]
  - Bile duct obstruction [Not Recovered/Not Resolved]
  - Pain [None]
  - Hepatic congestion [None]
  - Obstruction gastric [None]
  - Weight decreased [None]
  - Scar [None]
  - Scar [None]
  - Malnutrition [None]
  - Gastritis [None]
  - Hepatitis [None]
  - Blood triglycerides increased [None]
  - Cholelithiasis [None]
  - Pancreatitis [None]
